FAERS Safety Report 7944703-0 (Version None)
Quarter: 2011Q4

REPORT INFORMATION
  Report Type: 
  Country: None (occurrence: None)
  Receive Date: 20111122
  Receipt Date: 20110725
  Transmission Date: 20120403
  Serious: No
  Sender: FDA-Public Use
  Company Number: PHHY2011US61167

PATIENT
  Age: 37 Year
  Sex: Female
  Weight: 67.6 kg

DRUGS (1)
  1. GILENYA [Suspect]
     Indication: MULTIPLE SCLEROSIS
     Dosage: 0.5 MG, QD, ORAL
     Route: 048
     Dates: start: 20110706

REACTIONS (6)
  - SOMNOLENCE [None]
  - DIZZINESS [None]
  - FATIGUE [None]
  - NAUSEA [None]
  - HEADACHE [None]
  - SLUGGISHNESS [None]
